FAERS Safety Report 21497739 (Version 1)
Quarter: 2022Q4

REPORT INFORMATION
  Report Type: Report from Study
  Country: US (occurrence: US)
  Receive Date: 20221024
  Receipt Date: 20221024
  Transmission Date: 20230112
  Serious: Yes (Other)
  Sender: FDA-Public Use
  Company Number: US-BoehringerIngelheim-2022-BI-183345

PATIENT

DRUGS (1)
  1. OFEV [Suspect]
     Active Substance: NINTEDANIB
     Indication: Idiopathic pulmonary fibrosis
     Route: 048

REACTIONS (10)
  - Idiopathic pulmonary fibrosis [Unknown]
  - Blood pressure increased [Unknown]
  - Dizziness [Unknown]
  - Cardiac disorder [Unknown]
  - Heart rate decreased [Unknown]
  - Insomnia [Unknown]
  - Laziness [Unknown]
  - Dyspnoea [Recovered/Resolved]
  - Throat clearing [Unknown]
  - Cough [Recovering/Resolving]
